FAERS Safety Report 10206273 (Version 1)
Quarter: 2014Q2

REPORT INFORMATION
  Report Type: Spontaneous
  Country: US (occurrence: None)
  Receive Date: 20140527
  Receipt Date: 20140527
  Transmission Date: 20141212
  Serious: Yes (Hospitalization)
  Sender: FDA-Public Use
  Company Number: None

PATIENT
  Age: 60 Year
  Sex: Female
  Weight: 90.7 kg

DRUGS (3)
  1. CYCLOPHOSPHAMIDE [Suspect]
  2. PENTOSTATIN [Suspect]
  3. RITUXIMAB (MOAB C2B8 ANTI CD20, CHIMERIC) [Suspect]

REACTIONS (15)
  - Capillary leak syndrome [None]
  - Nausea [None]
  - Headache [None]
  - Dyspnoea [None]
  - Atelectasis [None]
  - Pleural effusion [None]
  - Pulseless electrical activity [None]
  - Splenomegaly [None]
  - Weight increased [None]
  - Left ventricular hypertrophy [None]
  - Pulmonary oedema [None]
  - Pulmonary congestion [None]
  - Pneumonia [None]
  - Staphylococcal infection [None]
  - Hepatomegaly [None]
